FAERS Safety Report 10430161 (Version 2)
Quarter: 2014Q3

REPORT INFORMATION
  Report Type: Spontaneous
  Country: JP (occurrence: JP)
  Receive Date: 20140904
  Receipt Date: 20140919
  Transmission Date: 20150326
  Serious: Yes (Death, Hospitalization)
  Sender: FDA-Public Use
  Company Number: JP-BAYER-2014-126688

PATIENT
  Age: 72 Year
  Sex: Male

DRUGS (2)
  1. BAYASPIRIN [Suspect]
     Active Substance: ASPIRIN
     Indication: EMBOLIC STROKE
     Dosage: UNK
     Route: 048
  2. UNFRACTIONATED HEPARIN [Interacting]
     Active Substance: HEPARIN SODIUM
     Indication: EMBOLIC STROKE
     Dosage: UNK

REACTIONS (3)
  - Subarachnoid haemorrhage [None]
  - Ventricular fibrillation [Fatal]
  - Labelled drug-drug interaction medication error [None]
